FAERS Safety Report 6641381-8 (Version None)
Quarter: 2010Q1

REPORT INFORMATION
  Report Type: 
  Country: None (occurrence: None)
  Receive Date: 20100318
  Receipt Date: 20100311
  Transmission Date: 20100710
  Serious: Yes (Hospitalization)
  Sender: FDA-Public Use
  Company Number: MX-ROCHE-637863

PATIENT
  Sex: Male
  Weight: 60 kg

DRUGS (7)
  1. TOCILIZUMAB [Suspect]
     Indication: RHEUMATOID ARTHRITIS
     Route: 042
     Dates: start: 20050613
  2. TOCILIZUMAB [Suspect]
     Route: 042
     Dates: start: 20060101, end: 20080707
  3. TOCILIZUMAB [Suspect]
     Route: 042
     Dates: end: 20090413
  4. TOCILIZUMAB [Suspect]
     Dosage: THE PATIENT WAS PREVIOUSLY IN WA17822 STUDY.
     Route: 042
  5. METHOTREXATE [Concomitant]
     Dosage: TDD REPORTED AS 15MG/QS
     Dates: start: 20041012
  6. FOLIC ACID [Concomitant]
     Dates: start: 20050613
  7. DICLOFENAC [Concomitant]
     Dates: start: 20020101

REACTIONS (1)
  - EMPHYSEMA [None]
